FAERS Safety Report 15563026 (Version 1)
Quarter: 2018Q4

REPORT INFORMATION
  Report Type: Spontaneous
  Country: AU (occurrence: AU)
  Receive Date: 20181029
  Receipt Date: 20181029
  Transmission Date: 20190205
  Serious: Yes (Death, Other)
  Sender: FDA-Public Use
  Company Number: AU-009507513-1810AUS010981

PATIENT
  Age: 38 Year
  Sex: Male

DRUGS (10)
  1. SEROQUEL [Suspect]
     Active Substance: QUETIAPINE FUMARATE
     Indication: ANXIETY
  2. AVANZA [Suspect]
     Active Substance: MIRTAZAPINE
     Indication: EMOTIONAL DISTRESS
  3. BUPRENORPHINE HYDROCHLORIDE. [Suspect]
     Active Substance: BUPRENORPHINE HYDROCHLORIDE
     Dosage: 8 MILLIGRAM
     Route: 060
     Dates: start: 20150404, end: 20150404
  4. BUPRENORPHINE HYDROCHLORIDE. [Suspect]
     Active Substance: BUPRENORPHINE HYDROCHLORIDE
     Dosage: 8 MILLIGRAM
     Route: 060
     Dates: start: 20150403, end: 20150403
  5. BUPRENORPHINE HYDROCHLORIDE. [Suspect]
     Active Substance: BUPRENORPHINE HYDROCHLORIDE
     Indication: DRUG DEPENDENCE
     Dosage: 4 MILLIGRAM
     Route: 060
     Dates: start: 20150403, end: 20150403
  6. SEROQUEL [Suspect]
     Active Substance: QUETIAPINE FUMARATE
     Indication: EMOTIONAL DISTRESS
  7. SEROQUEL [Suspect]
     Active Substance: QUETIAPINE FUMARATE
     Indication: DEPRESSION
  8. AVANZA [Suspect]
     Active Substance: MIRTAZAPINE
     Indication: ANXIETY
  9. AVANZA [Suspect]
     Active Substance: MIRTAZAPINE
     Indication: DEPRESSION
  10. DIAZEPAM. [Suspect]
     Active Substance: DIAZEPAM
     Indication: ALCOHOL WITHDRAWAL SYNDROME
     Dosage: UNK
     Dates: start: 20150402, end: 20150404

REACTIONS (5)
  - Toxicity to various agents [Fatal]
  - Miosis [Recovered/Resolved]
  - Respiratory depression [Fatal]
  - Prescribed overdose [Fatal]
  - Somnolence [Unknown]

NARRATIVE: CASE EVENT DATE: 20150403
